FAERS Safety Report 7344820-2 (Version None)
Quarter: 2011Q1

REPORT INFORMATION
  Report Type: 
  Country: None (occurrence: None)
  Receive Date: 20110310
  Receipt Date: 20100712
  Transmission Date: 20110831
  Serious: Yes (Other)
  Sender: FDA-Public Use
  Company Number: US-BAYER-200937766NA

PATIENT
  Sex: Female
  Weight: 104.31 kg

DRUGS (9)
  1. YAZ [Suspect]
     Indication: PRODUCT USED FOR UNKNOWN INDICATION
     Dosage: UNK
     Dates: start: 20080401, end: 20081101
  2. ATENOLOL [Concomitant]
     Indication: SINUS TACHYCARDIA
     Dosage: UNK
     Dates: start: 20060101
  3. LEVOTHROID [Concomitant]
     Indication: AUTOIMMUNE THYROIDITIS
     Dosage: UNK
  4. IBUPROFEN [Concomitant]
  5. UNCODEABLE ^UNCLASSIFIABLE^ [Concomitant]
     Indication: MIGRAINE
     Dosage: UNK
     Dates: start: 20020101
  6. UNCODEABLE ^UNCLASSIFIABLE^ [Concomitant]
  7. YASMIN [Suspect]
     Indication: CONTRACEPTION
     Dosage: 1 TAB/DAY
     Route: 048
  8. CYTOMEL [Concomitant]
     Indication: AUTOIMMUNE THYROIDITIS
     Dosage: UNK
  9. SUBOXONE [Concomitant]
     Indication: DRUG DEPENDENCE
     Dosage: UNK
     Dates: start: 20070101

REACTIONS (8)
  - PAINFUL RESPIRATION [None]
  - PULMONARY EMBOLISM [None]
  - MUSCLE SPASMS [None]
  - CHEST PAIN [None]
  - MUSCULOSKELETAL CHEST PAIN [None]
  - PULMONARY INFARCTION [None]
  - PAIN [None]
  - OEDEMA PERIPHERAL [None]
